FAERS Safety Report 8246897-9 (Version None)
Quarter: 2012Q1

REPORT INFORMATION
  Report Type: 
  Country: None (occurrence: None)
  Receive Date: 20120327
  Receipt Date: 20120306
  Transmission Date: 20120608
  Serious: Yes (Other)
  Sender: FDA-Public Use
  Company Number: PNIS20120014

PATIENT
  Age: 5 Year
  Sex: Female

DRUGS (2)
  1. ASPARAGINASE (ASPARAGINASE) [Suspect]
     Indication: NON-HODGKIN'S LYMPHOMA
     Dosage: 1000 IU/M2, UNK, INTRAMUSCULAR
     Route: 030
  2. PREDNISOLONE [Suspect]
     Indication: NON-HODGKIN'S LYMPHOMA
     Dosage: UNK, UNK, ORAL
     Route: 048

REACTIONS (9)
  - PERICARDIAL EFFUSION [None]
  - CHEST PAIN [None]
  - HYPERHIDROSIS [None]
  - TACHYPNOEA [None]
  - PALLOR [None]
  - HYPERTRIGLYCERIDAEMIA [None]
  - LETHARGY [None]
  - SINUS TACHYCARDIA [None]
  - HYPERCHOLESTEROLAEMIA [None]
